FAERS Safety Report 8837395 (Version 1)
Quarter: 2012Q4

REPORT INFORMATION
  Report Type: Report from Study
  Country: US (occurrence: US)
  Receive Date: 20121012
  Receipt Date: 20121012
  Transmission Date: 20130627
  Serious: Yes (Hospitalization)
  Sender: FDA-Public Use
  Company Number: US-MYLANLABS-2012S1020566

PATIENT
  Age: 67 Year
  Sex: Male

DRUGS (6)
  1. NIFEDIPINE [Suspect]
     Indication: HYPERTENSION
  2. CARBOPLATIN [Suspect]
     Indication: NON-SMALL CELL LUNG CANCER
     Dates: start: 20111107
  3. PACLITAXEL [Suspect]
     Indication: NON-SMALL CELL LUNG CANCER
     Dates: start: 20111107
  4. LISINOPRIL [Suspect]
     Indication: HYPERTENSION
  5. HYDROCHLOROTHIAZIDE [Suspect]
     Indication: HYPERTENSION
  6. CARDURA [Suspect]
     Indication: HYPERTENSION

REACTIONS (9)
  - Hypotension [Recovered/Resolved]
  - Dehydration [Recovered/Resolved]
  - Dizziness [None]
  - Gait disturbance [None]
  - Decreased appetite [None]
  - Weight decreased [None]
  - Blood urea increased [None]
  - Hypovolaemia [None]
  - Hypophagia [None]
